FAERS Safety Report 22331924 (Version 1)
Quarter: 2023Q2

REPORT INFORMATION
  Report Type: Other
  Country: US (occurrence: US)
  Receive Date: 20230517
  Receipt Date: 20230517
  Transmission Date: 20230722
  Serious: No
  Sender: FDA-Public Use
  Company Number: US-TRAVERE-2023TVT00102

PATIENT
  Age: 67 Year
  Sex: Male

DRUGS (3)
  1. FILSPARI [Suspect]
     Active Substance: SPARSENTAN
     Indication: Glomerulonephritis membranoproliferative
     Route: 048
  2. FILSPARI [Suspect]
     Active Substance: SPARSENTAN
     Indication: Chronic kidney disease
     Dosage: WHEN DOSE WAS DOUBLE PATIENT EXPERIENCED AE. HENCE, PATIENT STICK TO 200MG INSTEAD OF 400MG.
     Route: 048
  3. FILSPARI [Suspect]
     Active Substance: SPARSENTAN
     Indication: Proteinuria

REACTIONS (6)
  - Pruritus [Unknown]
  - Hypertension [Unknown]
  - Weight loss poor [Unknown]
  - Fatigue [Unknown]
  - Somnolence [Recovering/Resolving]
  - Rash pruritic [Not Recovered/Not Resolved]

NARRATIVE: CASE EVENT DATE: 20230101
